FAERS Safety Report 24875206 (Version 1)
Quarter: 2025Q1

REPORT INFORMATION
  Report Type: Spontaneous
  Country: AU (occurrence: AU)
  Receive Date: 20250122
  Receipt Date: 20250122
  Transmission Date: 20250409
  Serious: Yes (Other)
  Sender: NOVARTIS
  Company Number: AU-002147023-NVSC2025AU007807

PATIENT
  Age: 86 Year
  Sex: Male

DRUGS (1)
  1. LEQVIO [Suspect]
     Active Substance: INCLISIRAN SODIUM
     Indication: Hypercholesterolaemia
     Route: 065

REACTIONS (5)
  - Subclavian artery occlusion [Unknown]
  - Injection site pain [Unknown]
  - Headache [Unknown]
  - Injection site scar [Recovered/Resolved]
  - Product storage error [Unknown]
